FAERS Safety Report 6672402-4 (Version None)
Quarter: 2010Q2

REPORT INFORMATION
  Report Type: 
  Country: None (occurrence: None)
  Receive Date: 20100408
  Receipt Date: 20100324
  Transmission Date: 20101027
  Serious: Yes (Hospitalization, Other)
  Sender: FDA-Public Use
  Company Number: US-ELI_LILLY_AND_COMPANY-US201003004678

PATIENT
  Sex: Female

DRUGS (7)
  1. FORTEO [Suspect]
     Indication: OSTEOPOROSIS
     Dosage: 20 UG, DAILY (1/D)
     Dates: end: 20091001
  2. FORTEO [Suspect]
     Dosage: 20 UG, DAILY (1/D)
     Dates: start: 20100312
  3. PROTONIX [Concomitant]
     Dosage: UNK, DAILY (1/D)
  4. OMEPRAZOLE [Concomitant]
     Dosage: UNK, DAILY (1/D)
  5. FOLIC ACID [Concomitant]
     Dosage: UNK, DAILY (1/D)
  6. TRAMADOLE [Concomitant]
     Dosage: UNK, AS NEEDED
  7. REGLAN [Concomitant]
     Dosage: UNK, AS NEEDED

REACTIONS (7)
  - ARTHRALGIA [None]
  - BACK PAIN [None]
  - FOOT FRACTURE [None]
  - FRACTURE [None]
  - NAUSEA [None]
  - PELVIC FRACTURE [None]
  - WRIST FRACTURE [None]
